FAERS Safety Report 8217909-3 (Version None)
Quarter: 2012Q1

REPORT INFORMATION
  Report Type: 
  Country: None (occurrence: None)
  Receive Date: 20120319
  Receipt Date: 20120305
  Transmission Date: 20120608
  Serious: Yes (Hospitalization, Other)
  Sender: FDA-Public Use
  Company Number: DE-ELI_LILLY_AND_COMPANY-DE201203001586

PATIENT
  Age: 50 Year
  Sex: Female

DRUGS (11)
  1. LITHIUM CARBONATE [Concomitant]
     Indication: MAJOR DEPRESSION
     Dosage: 800 MG, UNK
  2. VENLAFAXINE [Concomitant]
     Dosage: 150 MG, QD
  3. VENLAFAXINE [Concomitant]
     Dosage: 75 MG, QD
  4. VENLAFAXINE [Concomitant]
     Dosage: 150 MG, QD
  5. VENLAFAXINE [Concomitant]
     Dosage: 225 MG, QD
  6. FLUOXETINE HYDROCHLORIDE [Suspect]
     Indication: MAJOR DEPRESSION
     Dosage: 60 MG, QD
     Route: 065
  7. VENLAFAXINE [Concomitant]
     Indication: MAJOR DEPRESSION
     Dosage: 37 MG, QD
  8. LEVOTHYROXINE SODIUM [Concomitant]
     Indication: HYPOTHYROIDISM
     Dosage: 125 UG, QD
  9. VENLAFAXINE [Concomitant]
     Dosage: 75 MG, QD
  10. VENLAFAXINE [Concomitant]
     Dosage: 225 MG, QD
  11. BISOPROLOL FUMARATE [Concomitant]
     Indication: ESSENTIAL HYPERTENSION
     Dosage: 2.5 MG, QD

REACTIONS (10)
  - HOSPITALISATION [None]
  - DRUG INTERACTION [None]
  - SEROTONIN SYNDROME [None]
  - TREMOR [None]
  - CONSTIPATION [None]
  - INSOMNIA [None]
  - AGITATION [None]
  - FEELING HOT [None]
  - ANXIETY [None]
  - DRUG INEFFECTIVE [None]
